FAERS Safety Report 6970791-4 (Version None)
Quarter: 2010Q3

REPORT INFORMATION
  Report Type: 
  Country: None (occurrence: None)
  Receive Date: 20100908
  Receipt Date: 20100901
  Transmission Date: 20110219
  Serious: Yes (Other)
  Sender: FDA-Public Use
  Company Number: A0878925A

PATIENT
  Age: 74 Year
  Sex: Male

DRUGS (5)
  1. ADVAIR DISKUS 100/50 [Suspect]
     Indication: CHRONIC OBSTRUCTIVE PULMONARY DISEASE
     Dosage: 1PUFF TWICE PER DAY
     Route: 055
     Dates: start: 20030101
  2. OXYGEN [Concomitant]
  3. SPIRIVA [Concomitant]
  4. ALBUTEROL [Concomitant]
  5. BONIVA [Concomitant]

REACTIONS (3)
  - CATARACT [None]
  - GLAUCOMA [None]
  - OSTEOPOROSIS [None]
